FAERS Safety Report 7936196-4 (Version None)
Quarter: 2011Q4

REPORT INFORMATION
  Report Type: 
  Country: None (occurrence: None)
  Receive Date: 20111123
  Receipt Date: 20111115
  Transmission Date: 20120403
  Serious: Yes (Hospitalization, Other)
  Sender: FDA-Public Use
  Company Number: CA-JNJFOC-20111107181

PATIENT
  Age: 3 Year
  Sex: Male

DRUGS (1)
  1. RISPERIDONE [Suspect]
     Indication: TOXICITY TO VARIOUS AGENTS
     Route: 048

REACTIONS (2)
  - TOXICITY TO VARIOUS AGENTS [None]
  - EXTRAPYRAMIDAL DISORDER [None]
